FAERS Safety Report 6786310-1 (Version None)
Quarter: 2010Q2

REPORT INFORMATION
  Report Type: 
  Country: None (occurrence: None)
  Receive Date: 20100623
  Receipt Date: 20100621
  Transmission Date: 20101027
  Serious: Yes (Death)
  Sender: FDA-Public Use
  Company Number: GXKR2010DE06793

PATIENT
  Age: 82 Year
  Sex: Male
  Weight: 83.8 kg

DRUGS (15)
  1. FUROSEMIDE (NGX) [Suspect]
     Dosage: 2 DF, BID
     Route: 042
     Dates: start: 20071020, end: 20071022
  2. VANCOMYCIN (NGX) [Suspect]
     Dosage: 1 DF, BID
     Route: 042
     Dates: start: 20071019, end: 20071025
  3. GENTAMICIN (NGX) [Suspect]
     Dosage: 4 DF, QD
     Route: 042
     Dates: start: 20071019, end: 20071025
  4. ACTRAPID HUMAN [Concomitant]
     Route: 058
  5. ALBUMIN HUMAN ^ARMOUR^ [Concomitant]
     Route: 042
  6. FUROSEMIDE ^RATIOPHARM^ [Concomitant]
     Route: 042
  7. NEBIVOLOL HCL [Concomitant]
     Route: 048
  8. ENALAPRIL ^HEUMANN^ [Concomitant]
     Route: 048
  9. ZIENAM [Concomitant]
     Route: 042
  10. ZOLPIDEM TARTRATE [Concomitant]
     Route: 048
  11. ATROVENT [Concomitant]
     Route: 048
  12. SALBUTAMOL AL INHALAT [Concomitant]
  13. THEOPHYLLINE [Concomitant]
     Route: 048
  14. THEOPHYLLINE [Concomitant]
     Route: 065
  15. ISOPTIN [Concomitant]
     Route: 042

REACTIONS (1)
  - RENAL FAILURE ACUTE [None]
